FAERS Safety Report 25707649 (Version 1)
Quarter: 2025Q3

REPORT INFORMATION
  Report Type: Spontaneous
  Country: EU (occurrence: EU)
  Receive Date: 20250820
  Receipt Date: 20250820
  Transmission Date: 20251020
  Serious: Yes (Hospitalization)
  Sender: MYLAN
  Company Number: None

PATIENT
  Age: 60 Year
  Sex: Female
  Weight: 105 kg

DRUGS (16)
  1. ACETAMINOPHEN [Suspect]
     Active Substance: ACETAMINOPHEN
     Indication: Spinal pain
     Dates: start: 20240920, end: 20240924
  2. ACETAMINOPHEN [Suspect]
     Active Substance: ACETAMINOPHEN
     Route: 048
     Dates: start: 20240920, end: 20240924
  3. ACETAMINOPHEN [Suspect]
     Active Substance: ACETAMINOPHEN
     Route: 048
     Dates: start: 20240920, end: 20240924
  4. ACETAMINOPHEN [Suspect]
     Active Substance: ACETAMINOPHEN
     Dates: start: 20240920, end: 20240924
  5. IBUPROFEN [Suspect]
     Active Substance: IBUPROFEN
     Indication: Spinal pain
     Dates: start: 20240920, end: 20240924
  6. IBUPROFEN [Suspect]
     Active Substance: IBUPROFEN
     Route: 048
     Dates: start: 20240920, end: 20240924
  7. IBUPROFEN [Suspect]
     Active Substance: IBUPROFEN
     Route: 048
     Dates: start: 20240920, end: 20240924
  8. IBUPROFEN [Suspect]
     Active Substance: IBUPROFEN
     Dates: start: 20240920, end: 20240924
  9. CODEINE [Suspect]
     Active Substance: CODEINE
     Indication: Spinal pain
     Dates: start: 20240920, end: 20240924
  10. CODEINE [Suspect]
     Active Substance: CODEINE
     Route: 048
     Dates: start: 20240920, end: 20240924
  11. CODEINE [Suspect]
     Active Substance: CODEINE
     Route: 048
     Dates: start: 20240920, end: 20240924
  12. CODEINE [Suspect]
     Active Substance: CODEINE
     Dates: start: 20240920, end: 20240924
  13. THIOCOLCHICOSIDE [Suspect]
     Active Substance: THIOCOLCHICOSIDE
     Indication: Spinal pain
     Dates: start: 20240920, end: 20240924
  14. THIOCOLCHICOSIDE [Suspect]
     Active Substance: THIOCOLCHICOSIDE
     Route: 048
     Dates: start: 20240920, end: 20240924
  15. THIOCOLCHICOSIDE [Suspect]
     Active Substance: THIOCOLCHICOSIDE
     Route: 048
     Dates: start: 20240920, end: 20240924
  16. THIOCOLCHICOSIDE [Suspect]
     Active Substance: THIOCOLCHICOSIDE
     Dates: start: 20240920, end: 20240924

REACTIONS (1)
  - Immune thrombocytopenia [Not Recovered/Not Resolved]

NARRATIVE: CASE EVENT DATE: 20241010
